FAERS Safety Report 18472919 (Version 2)
Quarter: 2021Q1

REPORT INFORMATION
  Report Type: Report from Study
  Country: JP (occurrence: JP)
  Receive Date: 20201106
  Receipt Date: 20210203
  Transmission Date: 20210419
  Serious: Yes (Hospitalization, Other)
  Sender: FDA-Public Use
  Company Number: JP-JNJFOC-A-CH2017-148484

PATIENT
  Sex: Male

DRUGS (74)
  1. EPOPROSTENOL ACT [Suspect]
     Active Substance: EPOPROSTENOL
     Dosage: 75.0 NG/KG, PER MIN
     Route: 041
     Dates: start: 20160804, end: 20161219
  2. ADEMPAS [Suspect]
     Active Substance: RIOCIGUAT
     Dosage: 2 MG, TID
     Route: 048
     Dates: start: 20161209, end: 20161212
  3. ADCIRCA [Suspect]
     Active Substance: TADALAFIL
     Indication: PULMONARY ARTERIAL HYPERTENSION
     Dosage: 5 MG, QD
     Route: 048
     Dates: start: 20160418, end: 20160510
  4. ADCIRCA [Suspect]
     Active Substance: TADALAFIL
     Dosage: 5 MG, BID
     Route: 048
     Dates: start: 20160511, end: 20160619
  5. TRANEXAMIC ACID. [Suspect]
     Active Substance: TRANEXAMIC ACID
     Indication: HAEMOPTYSIS
     Dosage: UNK
     Route: 048
     Dates: start: 20161014, end: 20161023
  6. CEFAZOLIN [Concomitant]
     Active Substance: CEFAZOLIN
     Indication: PROPHYLAXIS
     Route: 042
     Dates: start: 20150909, end: 20150913
  7. FUROSEMIDE. [Concomitant]
     Active Substance: FUROSEMIDE
     Indication: RIGHT VENTRICULAR FAILURE
     Route: 048
     Dates: start: 20150925, end: 20151221
  8. FUROSEMIDE. [Concomitant]
     Active Substance: FUROSEMIDE
     Dosage: 80?100MG/DAY
     Route: 048
  9. REVATIO [Concomitant]
     Active Substance: SILDENAFIL CITRATE
     Indication: PULMONARY ARTERIAL HYPERTENSION
     Route: 048
     Dates: start: 20160705, end: 20160709
  10. SAMSCA [Concomitant]
     Active Substance: TOLVAPTAN
     Route: 048
  11. EPOPROSTENOL ACT [Suspect]
     Active Substance: EPOPROSTENOL
     Dosage: 19.86 NG/KG, PER MIN
     Route: 041
  12. EPOPROSTENOL ACT [Suspect]
     Active Substance: EPOPROSTENOL
     Dosage: 26.6 NG/KG, PER MIN
     Route: 041
     Dates: start: 20150930
  13. ADEMPAS [Suspect]
     Active Substance: RIOCIGUAT
     Indication: PULMONARY ARTERIAL HYPERTENSION
     Dosage: 0.5 MG, TID
     Route: 048
     Dates: start: 20150804, end: 20150814
  14. LEVOCETIRIZINE DIHYDROCHLORIDE. [Suspect]
     Active Substance: LEVOCETIRIZINE DIHYDROCHLORIDE
     Indication: DERMATITIS ATOPIC
     Route: 048
  15. CEFACLOR. [Concomitant]
     Active Substance: CEFACLOR
     Indication: PROPHYLAXIS
     Route: 048
     Dates: start: 20151125, end: 20151221
  16. K?SUPPLY [Concomitant]
     Active Substance: POTASSIUM CHLORIDE
     Indication: ELECTROLYTE SUBSTITUTION THERAPY
     Route: 048
     Dates: start: 20160112
  17. K?SUPPLY [Concomitant]
     Active Substance: POTASSIUM CHLORIDE
     Route: 048
  18. BIOFERMIN [Concomitant]
     Active Substance: DIETARY SUPPLEMENT\PROBIOTICS
     Indication: PROPHYLAXIS
     Route: 048
     Dates: start: 20160930, end: 20161027
  19. MEROPENEM. [Concomitant]
     Active Substance: MEROPENEM
     Route: 042
     Dates: start: 20171108, end: 20171119
  20. PREDONINE [Concomitant]
     Active Substance: PREDNISOLONE
     Indication: PROPHYLAXIS
     Route: 048
     Dates: start: 20161223
  21. EPOPROSTENOL ACT [Suspect]
     Active Substance: EPOPROSTENOL
     Dosage: 30.6 ? 44.68 NG/KG, PER MIN
     Route: 041
     Dates: start: 20160105
  22. EPOPROSTENOL ACT [Suspect]
     Active Substance: EPOPROSTENOL
     Dosage: 59.04 NG/KG, PER MIN
     Route: 041
     Dates: start: 20160615, end: 20160803
  23. ADEMPAS [Suspect]
     Active Substance: RIOCIGUAT
     Route: 048
     Dates: start: 20171023
  24. FUROSEMIDE. [Concomitant]
     Active Substance: FUROSEMIDE
     Dosage: 60?80 MG PER DAY
     Route: 048
     Dates: start: 20151222, end: 20160728
  25. CEFZON [CEFDINIR] [Concomitant]
     Active Substance: CEFDINIR
     Route: 048
     Dates: start: 20170213, end: 20170227
  26. BAKTAR [Concomitant]
     Active Substance: SULFAMETHOXAZOLE\TRIMETHOPRIM
     Indication: PROPHYLAXIS
     Route: 048
     Dates: start: 20161102, end: 20161223
  27. TAZOPIP [Concomitant]
     Active Substance: PIPERACETAZINE\TAZOBACTAM
     Indication: PROPHYLAXIS
     Dosage: 4?3TIMES
     Route: 048
     Dates: start: 20160930, end: 20161003
  28. EPOPROSTENOL ACT [Suspect]
     Active Substance: EPOPROSTENOL
     Indication: PULMONARY ARTERIAL HYPERTENSION
     Dosage: 0.35 NG/KG, PER MIN
     Route: 041
     Dates: start: 20150807, end: 20150910
  29. EPOPROSTENOL ACT [Suspect]
     Active Substance: EPOPROSTENOL
     Dosage: 100.6 NG/KG, PER MIN
     Route: 041
  30. EPOPROSTENOL ACT [Suspect]
     Active Substance: EPOPROSTENOL
     Route: 041
  31. ADEMPAS [Suspect]
     Active Substance: RIOCIGUAT
     Dosage: 2.5 MG, TID
     Route: 048
     Dates: start: 20150815, end: 20161208
  32. ADCIRCA [Suspect]
     Active Substance: TADALAFIL
     Dosage: 15?30MG/DAY
     Route: 048
     Dates: start: 20160620, end: 20160630
  33. CEFAZOLIN [Concomitant]
     Active Substance: CEFAZOLIN
     Route: 042
     Dates: start: 20150924, end: 20150924
  34. CEFZON [Concomitant]
     Route: 048
     Dates: start: 20170626, end: 20170709
  35. LUPRAC [Concomitant]
     Active Substance: TORSEMIDE
     Indication: PULMONARY ARTERIAL HYPERTENSION
     Route: 048
     Dates: start: 20171109
  36. CUBICIN [Concomitant]
     Active Substance: DAPTOMYCIN
     Indication: DEVICE RELATED INFECTION
     Route: 042
     Dates: start: 20171002, end: 20171004
  37. FERROUS SULFATE. [Concomitant]
     Active Substance: FERROUS SULFATE
     Route: 048
  38. EPOPROSTENOL ACT [Suspect]
     Active Substance: EPOPROSTENOL
     Dosage: 44.68 NG/KG, PER MIN
     Route: 041
     Dates: start: 20160106
  39. EPOPROSTENOL ACT [Suspect]
     Active Substance: EPOPROSTENOL
     Dosage: 57.45 NG/KG, PER MIN
     Route: 041
  40. CEFAZOLIN [Concomitant]
     Active Substance: CEFAZOLIN
     Route: 042
     Dates: start: 20161208, end: 20161208
  41. CEFAZOLIN [Concomitant]
     Active Substance: CEFAZOLIN
     Route: 042
     Dates: start: 20170518, end: 20170518
  42. FUROSEMIDE. [Concomitant]
     Active Substance: FUROSEMIDE
     Route: 048
     Dates: start: 20160729
  43. REVATIO [Concomitant]
     Active Substance: SILDENAFIL CITRATE
     Route: 048
     Dates: start: 20160710
  44. ZITHROMAC [Concomitant]
     Active Substance: AZITHROMYCIN DIHYDRATE
     Indication: PNEUMONIA
     Route: 048
     Dates: start: 20161024, end: 20161028
  45. EPOPROSTENOL ACT [Suspect]
     Active Substance: EPOPROSTENOL
     Dosage: 54.6 NG/KG, PER MIN
     Route: 041
     Dates: start: 20160418, end: 20160614
  46. EPOPROSTENOL ACT [Suspect]
     Active Substance: EPOPROSTENOL
     Dosage: 82 NG/KG, PER MIN
     Route: 041
     Dates: end: 20161219
  47. ADEMPAS [Suspect]
     Active Substance: RIOCIGUAT
     Dosage: 1.5 MG, TID
     Route: 048
     Dates: start: 20161213, end: 20170518
  48. ADONA [CARBAZOCHROME SODIUM SULFONATE] [Suspect]
     Active Substance: CARBAZOCHROME SODIUM SULFONATE
     Indication: HAEMOPTYSIS
     Dosage: UNK
     Route: 048
     Dates: start: 20161014, end: 20161023
  49. CEFAZOLIN [Concomitant]
     Active Substance: CEFAZOLIN
     Route: 042
     Dates: start: 20170928, end: 20171002
  50. CEFACLOR. [Concomitant]
     Active Substance: CEFACLOR
     Indication: DEVICE RELATED INFECTION
     Route: 048
     Dates: start: 20170927, end: 20170928
  51. CEFZON [CEFDINIR] [Concomitant]
     Active Substance: CEFDINIR
     Route: 048
     Dates: start: 20171218
  52. FEBURIC [Concomitant]
     Active Substance: FEBUXOSTAT
     Indication: RIGHT VENTRICULAR FAILURE
     Dosage: 10~20MG Q.D.
     Route: 048
     Dates: start: 20171011
  53. EPOPROSTENOL ACT [Suspect]
     Active Substance: EPOPROSTENOL
     Dosage: 54.26 NG/KG, PER MIN
     Route: 041
  54. EPOPROSTENOL ACT [Suspect]
     Active Substance: EPOPROSTENOL
     Dosage: 72.73 NG/KG, PER MIN
     Route: 041
     Dates: end: 20160803
  55. EPOPROSTENOL ACT [Suspect]
     Active Substance: EPOPROSTENOL
     Dosage: 92.3 NG/KG, PER MIN
     Route: 041
     Dates: start: 20161219, end: 20170530
  56. OPSUMIT [Suspect]
     Active Substance: MACITENTAN
     Indication: PULMONARY ARTERIAL HYPERTENSION
     Dosage: 10 MG, QD
     Route: 048
     Dates: start: 20150731
  57. ADEMPAS [Suspect]
     Active Substance: RIOCIGUAT
     Dosage: 0.5?1MG/TID
     Route: 048
     Dates: start: 20170519, end: 20170529
  58. REVATIO [Concomitant]
     Active Substance: SILDENAFIL CITRATE
     Route: 048
  59. CEFZON [CEFDINIR] [Concomitant]
     Active Substance: CEFDINIR
     Indication: PROPHYLAXIS
     Route: 048
     Dates: start: 20160115, end: 20160120
  60. OXYGEN. [Concomitant]
     Active Substance: OXYGEN
     Route: 055
  61. MEROPENEM. [Concomitant]
     Active Substance: MEROPENEM
     Indication: PNEUMONIA
     Route: 042
     Dates: start: 20161021, end: 20161103
  62. TRAMADOL HYDROCHLORIDE. [Concomitant]
     Active Substance: TRAMADOL HYDROCHLORIDE
  63. HANP [Concomitant]
     Active Substance: CARPERITIDE
     Indication: RIGHT VENTRICULAR FAILURE
     Dosage: 0.008~0.033G
     Route: 042
     Dates: start: 20170928, end: 20171123
  64. EPOPROSTENOL ACT [Suspect]
     Active Substance: EPOPROSTENOL
     Dosage: 20.57 NG/KG, PER MIN
     Route: 041
     Dates: start: 20150911, end: 20150929
  65. EPOPROSTENOL ACT [Suspect]
     Active Substance: EPOPROSTENOL
     Dosage: 95.2 NG/KG, PER MIN
     Route: 041
     Dates: start: 20170601
  66. ADCIRCA [Suspect]
     Active Substance: TADALAFIL
     Route: 048
     Dates: start: 20160701
  67. CEFAZOLIN [Concomitant]
     Active Substance: CEFAZOLIN
     Route: 042
     Dates: start: 20150917, end: 20150917
  68. ALDACTONE [Concomitant]
     Active Substance: SPIRONOLACTONE
     Indication: RIGHT VENTRICULAR FAILURE
     Route: 048
     Dates: start: 20160108, end: 20160721
  69. CEFZON [CEFDINIR] [Concomitant]
     Active Substance: CEFDINIR
     Route: 048
     Dates: start: 20160302, end: 20160525
  70. MEROPENEM. [Concomitant]
     Active Substance: MEROPENEM
     Indication: DEVICE RELATED INFECTION
     Route: 042
     Dates: start: 20171001, end: 20171028
  71. LEVOFLOXACIN HEMIHYDRATE [Concomitant]
     Active Substance: LEVOFLOXACIN
     Indication: PROPHYLAXIS
     Dates: start: 20171201, end: 20171206
  72. FLUITRAN [Concomitant]
     Active Substance: TRICHLORMETHIAZIDE
     Dosage: 1?2TIMES/DA
  73. SPIRONOLACTONE. [Concomitant]
     Active Substance: SPIRONOLACTONE
     Route: 048
  74. TRAMCET [Concomitant]
     Active Substance: ACETAMINOPHEN\TRAMADOL
     Route: 048

REACTIONS (13)
  - Anaemia [Recovered/Resolved]
  - Pyrexia [Recovered/Resolved]
  - Right ventricular failure [Recovering/Resolving]
  - Haemoptysis [Recovered/Resolved]
  - Eosinophilic pneumonia [Recovered/Resolved]
  - Pneumonia [Recovered/Resolved]
  - Transfusion [Unknown]
  - Device related infection [Recovered/Resolved]
  - Kidney congestion [Recovering/Resolving]
  - Headache [Recovering/Resolving]
  - Catheter management [Unknown]
  - Pulmonary hypertension [Recovering/Resolving]
  - Concomitant disease aggravated [Recovering/Resolving]

NARRATIVE: CASE EVENT DATE: 20150821
